FAERS Safety Report 14612125 (Version 3)
Quarter: 2018Q2

REPORT INFORMATION
  Report Type: Report from Study
  Country: US (occurrence: US)
  Receive Date: 20180308
  Receipt Date: 20180419
  Transmission Date: 20180711
  Serious: Yes (Death, Hospitalization, Other)
  Sender: FDA-Public Use
  Company Number: US-BAYER-2017-250804

PATIENT
  Age: 38 Year
  Sex: Male

DRUGS (1)
  1. STIVARGA [Suspect]
     Active Substance: REGORAFENIB
     Indication: COLORECTAL CANCER
     Dosage: 80 MG, QD
     Route: 048
     Dates: start: 20171222, end: 20180218

REACTIONS (31)
  - Breakthrough pain [None]
  - Vomiting [None]
  - Dehydration [None]
  - Small intestinal obstruction [None]
  - Small intestinal perforation [None]
  - Hypotension [None]
  - Haemoglobin decreased [None]
  - Constipation [None]
  - Arthralgia [None]
  - Dehydration [Recovering/Resolving]
  - Vomiting [Not Recovered/Not Resolved]
  - Hepatic enzyme increased [Not Recovered/Not Resolved]
  - Bone pain [None]
  - Blood pressure increased [None]
  - Nausea [None]
  - Anaemia [None]
  - Ureteral stent insertion [None]
  - Headache [None]
  - Oedema peripheral [None]
  - Jaundice [None]
  - Cough [None]
  - Fatigue [None]
  - Dysphonia [None]
  - Off label use [None]
  - Decreased appetite [Recovering/Resolving]
  - Abdominal discomfort [None]
  - Weight decreased [None]
  - Colorectal cancer [Fatal]
  - Micturition disorder [Recovering/Resolving]
  - Body temperature increased [None]
  - Pyrexia [None]
